FAERS Safety Report 18561687 (Version 1)
Quarter: 2020Q4

REPORT INFORMATION
  Report Type: Spontaneous
  Country: JP (occurrence: JP)
  Receive Date: 20201201
  Receipt Date: 20201201
  Transmission Date: 20210114
  Serious: Yes (Other)
  Sender: FDA-Public Use
  Company Number: JP-ROCHE-2723748

PATIENT
  Age: 89 Year
  Sex: Male

DRUGS (1)
  1. LUCENTIS [Suspect]
     Active Substance: RANIBIZUMAB
     Indication: PRODUCT USED FOR UNKNOWN INDICATION
     Dosage: UNK
     Route: 031

REACTIONS (6)
  - Blood albumin decreased [Unknown]
  - Blood pressure increased [Unknown]
  - Oedema [Unknown]
  - Nephritis [Unknown]
  - Protein urine [Unknown]
  - Haematuria [Unknown]
